FAERS Safety Report 7691827-1 (Version None)
Quarter: 2011Q3

REPORT INFORMATION
  Report Type: 
  Country: None (occurrence: None)
  Receive Date: 20110818
  Receipt Date: 20110809
  Transmission Date: 20111222
  Serious: No
  Sender: FDA-Public Use
  Company Number: US-PFIZER INC-2011143090

PATIENT
  Sex: Male
  Weight: 80.726 kg

DRUGS (7)
  1. BLINDED FESOTERODINE [Suspect]
     Indication: HYPERTONIC BLADDER
     Dosage: ONCE DAILY
     Route: 048
     Dates: start: 20110502, end: 20110626
  2. ASCORBIC ACID [Concomitant]
     Indication: MEDICAL DIET
     Dosage: 500 MG, 1X/DAY
     Route: 048
     Dates: start: 19950101
  3. PLACEBO [Suspect]
     Indication: HYPERTONIC BLADDER
     Dosage: ONCE DAILY
     Route: 048
     Dates: start: 20110502, end: 20110626
  4. BLINDED NO SUBJECT DRUG [Suspect]
     Indication: HYPERTONIC BLADDER
     Dosage: ONCE DAILY
     Route: 048
     Dates: start: 20110502, end: 20110626
  5. ACETYLSALICYLIC ACID [Concomitant]
     Indication: PROPHYLAXIS
     Dosage: 81 MG, 1X/DAY
     Route: 048
     Dates: start: 19950101
  6. HYDROCODONE BITARTRATE [Suspect]
  7. VITAMIN D [Concomitant]
     Indication: MEDICAL DIET
     Dosage: ONE TABLET DAILY
     Dates: start: 19950101

REACTIONS (5)
  - DRUG INEFFECTIVE [None]
  - SOMNOLENCE [None]
  - MICTURITION URGENCY [None]
  - DISTURBANCE IN ATTENTION [None]
  - ACCIDENT [None]
